FAERS Safety Report 7623190-6 (Version None)
Quarter: 2011Q3

REPORT INFORMATION
  Report Type: 
  Country: None (occurrence: None)
  Receive Date: 20110720
  Receipt Date: 20110711
  Transmission Date: 20111222
  Serious: Yes (Hospitalization)
  Sender: FDA-Public Use
  Company Number: US-GENZYME-THYM-1002600

PATIENT
  Sex: Female

DRUGS (10)
  1. THYMOGLOBULIN [Suspect]
     Indication: PROPHYLAXIS AGAINST TRANSPLANT REJECTION
     Dosage: 125 MG, QD
     Route: 042
     Dates: start: 20110701, end: 20110702
  2. METHYLPREDNISOLONE [Concomitant]
     Indication: PREMEDICATION
     Dosage: 500 MG, UNK
     Dates: start: 20110701, end: 20110701
  3. HYDROCORTISONE [Concomitant]
     Indication: PREMEDICATION
     Dosage: 50 MG, UNK
     Route: 042
     Dates: start: 20110702, end: 20110702
  4. TYLENOL-500 [Concomitant]
     Indication: PREMEDICATION
     Dosage: 650 MG, UNK
     Dates: start: 20110701, end: 20110701
  5. METHYLPREDNISOLONE [Concomitant]
     Dosage: 250 MG, UNK
     Dates: start: 20110702, end: 20110702
  6. METHYLPREDNISOLONE [Concomitant]
     Dosage: 100 MG, UNK
     Route: 042
     Dates: start: 20110703, end: 20110703
  7. THYMOGLOBULIN [Suspect]
     Dosage: UNK
     Dates: start: 20110707, end: 20110707
  8. BENADRYL [Concomitant]
     Dosage: 25 MG, UNK
     Route: 048
     Dates: start: 20110702, end: 20110702
  9. BENADRYL [Concomitant]
     Indication: PREMEDICATION
     Dosage: 50 MG, UNK
     Route: 042
     Dates: start: 20110701, end: 20110701
  10. TYLENOL-500 [Concomitant]
     Dosage: 650 MG, UNK
     Dates: start: 20110702, end: 20110702

REACTIONS (2)
  - PULMONARY OEDEMA [None]
  - ACUTE RESPIRATORY DISTRESS SYNDROME [None]
